FAERS Safety Report 6078145-2 (Version None)
Quarter: 2009Q1

REPORT INFORMATION
  Report Type: 
  Country: None (occurrence: None)
  Receive Date: 20090213
  Receipt Date: 20090211
  Transmission Date: 20090719
  Serious: Yes (Life-Threatening)
  Sender: FDA-Public Use
  Company Number: AU-B.I. PHARMACEUTICALS,INC./RIDGEFIELD-2009-BP-01394AU

PATIENT
  Sex: Male
  Weight: 80 kg

DRUGS (2)
  1. MICARDIS HCT [Suspect]
     Indication: HYPERTENSION
     Dosage: 80MG/12.5M
     Route: 048
     Dates: start: 20070613
  2. MICARDIS [Suspect]

REACTIONS (1)
  - ACUTE MYOCARDIAL INFARCTION [None]
